FAERS Safety Report 16794122 (Version 1)
Quarter: 2019Q3

REPORT INFORMATION
  Report Type: Spontaneous
  Country: SE (occurrence: SE)
  Receive Date: 20190911
  Receipt Date: 20190911
  Transmission Date: 20191005
  Serious: Yes (Hospitalization)
  Sender: FDA-Public Use
  Company Number: SE-ACCORD-154436

PATIENT
  Age: 28 Year
  Sex: Female

DRUGS (6)
  1. OLANZAPINE. [Suspect]
     Active Substance: OLANZAPINE
     Dosage: OLANZAPINE SOME 10 AND SOME 5, HALF (75 MG)
     Dates: start: 20190524, end: 20190524
  2. LERGIGAN (PROMETHAZINE) [Suspect]
     Active Substance: PROMETHAZINE HYDROCHLORIDE
     Dosage: 22
     Route: 048
     Dates: start: 20190524, end: 20190524
  3. JARDIANCE [Suspect]
     Active Substance: EMPAGLIFLOZIN
     Dosage: 3
     Dates: start: 20190524, end: 20190524
  4. ZOPICLONE [Suspect]
     Active Substance: ZOPICLONE
     Dosage: 2
     Dates: start: 20190524, end: 20190524
  5. ESOMEPRAZOLE/ESOMEPRAZOLE MAGNESIUM/ESOMEPRAZOLE SODIUM [Suspect]
     Active Substance: ESOMEPRAZOLE
     Dosage: 3
     Dates: start: 20190524, end: 20190524
  6. ANAFRANIL [Suspect]
     Active Substance: CLOMIPRAMINE HYDROCHLORIDE
     Dosage: 3
     Dates: start: 20190524, end: 20190524

REACTIONS (5)
  - Intentional overdose [Unknown]
  - Akathisia [Unknown]
  - Hallucination [Unknown]
  - Intentional self-injury [Unknown]
  - Depressed level of consciousness [Unknown]

NARRATIVE: CASE EVENT DATE: 20190524
